FAERS Safety Report 8763731 (Version 2)
Quarter: 2013Q1

REPORT INFORMATION
  Report Type: Spontaneous
  Country: NZ (occurrence: NZ)
  Receive Date: 20120831
  Receipt Date: 20130328
  Transmission Date: 20140127
  Serious: Yes (Other)
  Sender: FDA-Public Use
  Company Number: PHHY2012NZ075064

PATIENT
  Sex: Male

DRUGS (1)
  1. ACLASTA [Suspect]
     Dosage: UNK
     Route: 042
     Dates: start: 20111213

REACTIONS (4)
  - Movement disorder [Recovered/Resolved]
  - Asthenia [Recovered/Resolved]
  - Hypokinesia [Unknown]
  - Malaise [Unknown]
